FAERS Safety Report 14770478 (Version 1)
Quarter: 2018Q2

REPORT INFORMATION
  Report Type: Spontaneous
  Country: RO (occurrence: RO)
  Receive Date: 20180417
  Receipt Date: 20180417
  Transmission Date: 20180711
  Serious: Yes (Life-Threatening, Hospitalization)
  Sender: FDA-Public Use
  Company Number: RO-PFIZER INC-2018154571

PATIENT
  Age: 60 Year
  Sex: Male
  Weight: 110 kg

DRUGS (4)
  1. PRESTARIUM [Concomitant]
     Active Substance: PERINDOPRIL
     Dosage: 10 MG, UNK
  2. PREDUCTAL [Concomitant]
     Active Substance: TRIMETAZIDINE DIHYDROCHLORIDE
     Dosage: 35 MG, UNK
  3. TERTENSIF [Concomitant]
     Active Substance: INDAPAMIDE
     Dosage: 1.5 MG, UNK
  4. IBUPROFEN. [Suspect]
     Active Substance: IBUPROFEN
     Indication: RHINITIS
     Dosage: UNK
     Route: 048
     Dates: start: 20180302, end: 20180302

REACTIONS (1)
  - Angioedema [Recovered/Resolved]

NARRATIVE: CASE EVENT DATE: 20180302
